FAERS Safety Report 26034443 (Version 1)
Quarter: 2025Q4

REPORT INFORMATION
  Report Type: Spontaneous
  Country: US (occurrence: US)
  Receive Date: 20251112
  Receipt Date: 20251112
  Transmission Date: 20260117
  Serious: Yes (Other)
  Sender: ROCHE
  Company Number: US-ROCHE-10000429474

PATIENT

DRUGS (6)
  1. FARICIMAB-SVOA [Suspect]
     Active Substance: FARICIMAB-SVOA
     Indication: Neovascular age-related macular degeneration
     Route: 050
     Dates: start: 202411
  2. FARICIMAB-SVOA [Suspect]
     Active Substance: FARICIMAB-SVOA
  3. FARICIMAB-SVOA [Suspect]
     Active Substance: FARICIMAB-SVOA
  4. FARICIMAB-SVOA [Suspect]
     Active Substance: FARICIMAB-SVOA
  5. Ranibizumab injection [Concomitant]
  6. BEVACIZUMAB [Concomitant]
     Active Substance: BEVACIZUMAB

REACTIONS (1)
  - Retinal detachment [Recovered/Resolved]
